FAERS Safety Report 11368008 (Version 1)
Quarter: 2015Q3

REPORT INFORMATION
  Report Type: Spontaneous
  Country: US (occurrence: None)
  Receive Date: 20150810
  Receipt Date: 20150810
  Transmission Date: 20151125
  Serious: Yes (Hospitalization)
  Sender: FDA-Public Use
  Company Number: IPC201507-000501

PATIENT
  Age: 25 Year
  Sex: Male

DRUGS (1)
  1. ONDANSETRON (ONDANSETRON) (ONDANSETRON) [Suspect]
     Active Substance: ONDANSETRON
     Indication: PROCEDURAL NAUSEA
     Dosage: INCREASED INGESTION UPTO 40 TABLETS/DAY?

REACTIONS (4)
  - Posterior reversible encephalopathy syndrome [None]
  - Brain oedema [None]
  - Cerebral haemorrhage [None]
  - Overdose [None]
